FAERS Safety Report 5911895-4 (Version None)
Quarter: 2008Q4

REPORT INFORMATION
  Report Type: 
  Country: None (occurrence: None)
  Receive Date: 20081008
  Receipt Date: 20080924
  Transmission Date: 20090506
  Serious: Yes (Death, Other)
  Sender: FDA-Public Use
  Company Number: PHHY2008JP22570

PATIENT
  Sex: Male

DRUGS (1)
  1. GLEEVEC [Suspect]
     Indication: LYMPHOCYTIC LEUKAEMIA
     Dosage: 300 MG/DAY
     Route: 048

REACTIONS (6)
  - BONE LESION [None]
  - BONE MARROW FAILURE [None]
  - COMPRESSION FRACTURE [None]
  - NASAL SINUS CANCER [None]
  - SEPSIS [None]
  - WHITE BLOOD CELL COUNT DECREASED [None]
